FAERS Safety Report 20048842 (Version 1)
Quarter: 2021Q4

REPORT INFORMATION
  Report Type: Spontaneous
  Country: US (occurrence: US)
  Receive Date: 20211109
  Receipt Date: 20211109
  Transmission Date: 20220304
  Serious: No
  Sender: FDA-Public Use
  Company Number: US-Accord-224448

PATIENT
  Age: 55 Year
  Sex: Female
  Weight: 59.09 kg

DRUGS (1)
  1. HYDROCHLOROTHIAZIDE [Suspect]
     Active Substance: HYDROCHLOROTHIAZIDE
     Indication: Product used for unknown indication
     Dosage: STRENGTH-12.5 MG TB

REACTIONS (1)
  - Gingival swelling [Unknown]
